FAERS Safety Report 14377617 (Version 2)
Quarter: 2018Q1

REPORT INFORMATION
  Report Type: Spontaneous
  Country: FR (occurrence: FR)
  Receive Date: 20180111
  Receipt Date: 20180126
  Transmission Date: 20180509
  Serious: Yes (Hospitalization, Other)
  Sender: FDA-Public Use
  Company Number: FR-MYLANLABS-2018M1003075

PATIENT
  Age: 83 Year
  Sex: Female
  Weight: 44 kg

DRUGS (5)
  1. IMOVANE [Concomitant]
     Active Substance: ZOPICLONE
     Indication: PRODUCT USED FOR UNKNOWN INDICATION
     Dosage: UNK
  2. MACROGOL [Suspect]
     Active Substance: POLYETHYLENE GLYCOLS
     Indication: CONSTIPATION
     Dosage: UNK
  3. FONDAPARINUX [Suspect]
     Active Substance: FONDAPARINUX
     Indication: PHLEBITIS
     Dosage: 5 MG, UNK
     Dates: start: 20171029
  4. NICARDIPINE [Concomitant]
     Active Substance: NICARDIPINE
     Indication: PRODUCT USED FOR UNKNOWN INDICATION
     Dosage: UNK
  5. APROVEL [Concomitant]
     Active Substance: IRBESARTAN
     Indication: HYPERTENSION
     Dosage: UNK

REACTIONS (4)
  - Necrosis [Unknown]
  - Off label use [Unknown]
  - Haematoma [Recovering/Resolving]
  - Procedural haemorrhage [Unknown]

NARRATIVE: CASE EVENT DATE: 20171105
